FAERS Safety Report 5078989-X (Version None)
Quarter: 2006Q3

REPORT INFORMATION
  Report Type: 
  Country: None (occurrence: None)
  Receive Date: 20060809
  Receipt Date: 20060731
  Transmission Date: 20061208
  Serious: Yes (Hospitalization)
  Sender: FDA-Public Use
  Company Number: 2006BI010753

PATIENT
  Age: 55 Year
  Sex: Female
  Weight: 63.5036 kg

DRUGS (6)
  1. AVONEX [Suspect]
     Indication: MULTIPLE SCLEROSIS
     Dosage: 30 UG; QW; IM
     Route: 030
     Dates: start: 19960101, end: 20050101
  2. AVONEX [Suspect]
     Indication: MULTIPLE SCLEROSIS
     Dosage: 30 UG; QW; IM
     Route: 030
     Dates: start: 20050101
  3. NEURONTIN [Concomitant]
  4. DITROPAN [Concomitant]
  5. AMITRIPTYLINE HCL [Concomitant]
  6. BACLOFEN [Concomitant]

REACTIONS (7)
  - ARTHROPOD BITE [None]
  - BLADDER DISORDER [None]
  - BLISTER [None]
  - CULTURE WOUND POSITIVE [None]
  - LOCALISED INFECTION [None]
  - OEDEMA PERIPHERAL [None]
  - WOUND INFECTION STAPHYLOCOCCAL [None]
